FAERS Safety Report 5803464-1 (Version None)
Quarter: 2008Q3

REPORT INFORMATION
  Report Type: 
  Country: None (occurrence: None)
  Receive Date: 20080708
  Receipt Date: 20080627
  Transmission Date: 20090109
  Serious: Yes (Disabling)
  Sender: FDA-Public Use
  Company Number: PHHY2008CH12258

PATIENT
  Age: 86 Year
  Sex: Male

DRUGS (7)
  1. AREDIA [Suspect]
     Indication: OSTEOPOROSIS
     Dosage: UNK
     Dates: start: 20030101, end: 20080201
  2. DEPONIT [Concomitant]
  3. SINTROM [Concomitant]
  4. NEXIUM [Concomitant]
  5. DAFALGAN [Concomitant]
  6. ROCALTROL [Concomitant]
  7. IRBESARTAN [Concomitant]

REACTIONS (6)
  - BONE DISORDER [None]
  - IMPAIRED HEALING [None]
  - OSTEONECROSIS [None]
  - PRIMARY SEQUESTRUM [None]
  - TOOTH DISORDER [None]
  - TOOTH EXTRACTION [None]
